FAERS Safety Report 9592781 (Version 1)
Quarter: 2013Q3

REPORT INFORMATION
  Report Type: Spontaneous
  Country: US (occurrence: None)
  Receive Date: 20130930
  Receipt Date: 20130930
  Transmission Date: 20140515
  Serious: Yes (Other)
  Sender: FDA-Public Use
  Company Number: 1000045934

PATIENT
  Age: 91 Year
  Sex: Male

DRUGS (10)
  1. LINZESS [Suspect]
     Indication: IRRITABLE BOWEL SYNDROME
     Dosage: 145 MCG, 1 IN 1 D
     Route: 048
     Dates: start: 201305
  2. TOPROL [Concomitant]
  3. FUROSEMIDE [Concomitant]
  4. PLAVIX [Concomitant]
  5. SINGULAIR [Concomitant]
  6. COSOPT [Concomitant]
  7. ARCAPTA NEOHALER [Concomitant]
  8. PANTOPRAZOLE [Concomitant]
  9. LIPITOR [Concomitant]
  10. ASPIRIN [Concomitant]

REACTIONS (1)
  - Abdominal pain [None]
